FAERS Safety Report 9351366 (Version 1)
Quarter: 2013Q2

REPORT INFORMATION
  Report Type: Spontaneous
  Country: US (occurrence: US)
  Receive Date: 20130617
  Receipt Date: 20130617
  Transmission Date: 20140414
  Serious: No
  Sender: FDA-Public Use
  Company Number: US-ASTRAZENECA-2013SE41439

PATIENT
  Sex: Female

DRUGS (4)
  1. CRESTOR [Suspect]
     Route: 048
  2. ZETIA [Concomitant]
  3. WHELCL [Concomitant]
  4. NOVOPROL [Concomitant]

REACTIONS (4)
  - Pain [Unknown]
  - Gastrooesophageal reflux disease [Unknown]
  - Parathyroid disorder [Unknown]
  - Muscle spasms [Unknown]
